FAERS Safety Report 24099681 (Version 2)
Quarter: 2024Q3

REPORT INFORMATION
  Report Type: Spontaneous
  Country: US (occurrence: US)
  Receive Date: 20240716
  Receipt Date: 20240812
  Transmission Date: 20241017
  Serious: Yes (Other)
  Sender: NOVO NORDISK
  Company Number: US-NOVOPROD-1214409

PATIENT
  Age: 74 Year
  Sex: Male

DRUGS (2)
  1. OZEMPIC [Suspect]
     Active Substance: SEMAGLUTIDE
     Indication: Product used for unknown indication
     Dosage: UNK
     Route: 058
  2. LEQVIO [Suspect]
     Active Substance: INCLISIRAN SODIUM
     Indication: Product used for unknown indication
     Dosage: UNK

REACTIONS (8)
  - Basal cell carcinoma [Unknown]
  - Pruritus [Unknown]
  - Abdominal distension [Unknown]
  - Abdominal discomfort [Unknown]
  - Asthenia [Unknown]
  - Weight decreased [Unknown]
  - Flatulence [Unknown]
  - Eructation [Unknown]
